FAERS Safety Report 7251122-1 (Version None)
Quarter: 2011Q1

REPORT INFORMATION
  Report Type: 
  Country: None (occurrence: None)
  Receive Date: 20110128
  Receipt Date: 20110120
  Transmission Date: 20110831
  Serious: Yes (Hospitalization)
  Sender: FDA-Public Use
  Company Number: DE-GILEAD-2011-0035545

PATIENT
  Sex: Male
  Weight: 61.3 kg

DRUGS (3)
  1. VIRAMUNE [Suspect]
     Dates: start: 20080917, end: 20080928
  2. TRUVADA [Suspect]
     Indication: HIV INFECTION
     Route: 048
     Dates: start: 20080904, end: 20080928
  3. VIRAMUNE [Suspect]
     Indication: HIV INFECTION
     Dates: start: 20080917, end: 20080928

REACTIONS (1)
  - HEPATIC FAILURE [None]
